FAERS Safety Report 9469316 (Version 1)
Quarter: 2013Q3

REPORT INFORMATION
  Report Type: Spontaneous
  Country: US (occurrence: None)
  Receive Date: 20130815
  Receipt Date: 20130815
  Transmission Date: 20140515
  Serious: Yes (Other)
  Sender: FDA-Public Use
  Company Number: SYM-2013-08620

PATIENT
  Age: 51 Year
  Sex: Female

DRUGS (2)
  1. TARGRETIN [Suspect]
     Indication: MYCOSIS FUNGOIDES
     Dosage: 1 IN 1 D
     Route: 048
  2. INTERFERON ALFA [Concomitant]

REACTIONS (1)
  - T-cell lymphoma [None]
